FAERS Safety Report 14942212 (Version 1)
Quarter: 2018Q2

REPORT INFORMATION
  Report Type: Spontaneous
  Country: US (occurrence: US)
  Receive Date: 20180528
  Receipt Date: 20180528
  Transmission Date: 20180711
  Serious: Yes (Hospitalization, Other)
  Sender: FDA-Public Use
  Company Number: US-BIOGEN-2011BI000648

PATIENT
  Age: 60 Year
  Sex: Female
  Weight: 61.29 kg

DRUGS (2)
  1. AVONEX [Suspect]
     Active Substance: INTERFERON BETA-1A
     Route: 030
     Dates: start: 2003
  2. AVONEX [Suspect]
     Active Substance: INTERFERON BETA-1A
     Indication: MULTIPLE SCLEROSIS
     Route: 030
     Dates: start: 20000809, end: 2003

REACTIONS (6)
  - Pneumonia [Recovered/Resolved]
  - Tracheostomy [Unknown]
  - Oesophageal stent removal [Unknown]
  - Malaise [Unknown]
  - Oesophageal rupture [Unknown]
  - Vocal cord paralysis [Unknown]

NARRATIVE: CASE EVENT DATE: 2009
